FAERS Safety Report 21412157 (Version 1)
Quarter: 2022Q4

REPORT INFORMATION
  Report Type: Spontaneous
  Country: US (occurrence: None)
  Receive Date: 20221004
  Receipt Date: 20221004
  Transmission Date: 20230112
  Serious: Yes (Hospitalization)
  Sender: FDA-Public Use
  Company Number: None

PATIENT
  Age: 77 Year
  Sex: Male
  Weight: 74.98 kg

DRUGS (8)
  1. DEFERASIROX [Suspect]
     Active Substance: DEFERASIROX
     Indication: Refractory anaemia with ringed sideroblasts
     Dosage: FREQUENCY : DAILY;?
     Route: 048
     Dates: start: 202207
  2. ALLOPURINOL [Concomitant]
     Active Substance: ALLOPURINOL
  3. ASCORBIC ACID [Concomitant]
     Active Substance: ASCORBIC ACID
  4. ASPIRIN [Concomitant]
     Active Substance: ASPIRIN
  5. KEFLEX [Concomitant]
     Active Substance: CEPHALEXIN
  6. LORAZEPAM [Concomitant]
     Active Substance: LORAZEPAM
  7. METOPROLOL [Concomitant]
  8. TYLENOL [Concomitant]

REACTIONS (1)
  - Kidney infection [None]
